FAERS Safety Report 4617082-4 (Version None)
Quarter: 2005Q1

REPORT INFORMATION
  Report Type: 
  Country: None (occurrence: None)
  Receive Date: 20050321
  Receipt Date: 20050314
  Transmission Date: 20050727
  Serious: Yes (Other)
  Sender: FDA-Public Use
  Company Number: 26370

PATIENT
  Age: 61 Year
  Sex: Male

DRUGS (4)
  1. ALDARA [Suspect]
     Indication: BASAL CELL CARCINOMA
     Dosage: 5 APPLICATION S WEEKLY (1 DOSAGE FORMS, 5 IN 1 WEEKS9S)), TOPICAL
     Route: 061
     Dates: start: 20050107, end: 20050211
  2. DETENSIEL             (BISOPROL) [Concomitant]
  3. KARDEGIC            (ACETYLSALICYLATE LYSINE) [Concomitant]
  4. FLECAINE [Concomitant]

REACTIONS (3)
  - APPLICATION SITE ERYTHEMA [None]
  - APPLICATION SITE ULCER [None]
  - THROMBOCYTOPENIA [None]
